FAERS Safety Report 19902574 (Version 3)
Quarter: 2022Q1

REPORT INFORMATION
  Report Type: Spontaneous
  Country: US (occurrence: US)
  Receive Date: 20210930
  Receipt Date: 20220124
  Transmission Date: 20220423
  Serious: Yes (Hospitalization)
  Sender: FDA-Public Use
  Company Number: US-SA-SAC20210929000958

PATIENT
  Sex: Female

DRUGS (1)
  1. DUPIXENT [Suspect]
     Active Substance: DUPILUMAB
     Indication: Asthma
     Dosage: 200 MG, QOW
     Route: 058
     Dates: start: 202001

REACTIONS (4)
  - Arthropathy [Unknown]
  - Inflammation [Unknown]
  - Unevaluable event [Unknown]
  - Surgery [Unknown]

NARRATIVE: CASE EVENT DATE: 20210101
